FAERS Safety Report 5131842-5 (Version None)
Quarter: 2006Q4

REPORT INFORMATION
  Report Type: 
  Country: None (occurrence: None)
  Receive Date: 20061016
  Receipt Date: 20061006
  Transmission Date: 20070319
  Serious: Yes (Hospitalization, Other)
  Sender: FDA-Public Use
  Company Number: 2006123454

PATIENT

DRUGS (1)
  1. LIPITOR [Suspect]
     Indication: BLOOD CHOLESTEROL INCREASED

REACTIONS (4)
  - CATHETER PLACEMENT [None]
  - COMPUTERISED TOMOGRAM THORAX [None]
  - MYOSITIS [None]
  - POST PROCEDURAL COMPLICATION [None]
